FAERS Safety Report 19718133 (Version 1)
Quarter: 2021Q3

REPORT INFORMATION
  Report Type: Spontaneous
  Country: US (occurrence: US)
  Receive Date: 20210818
  Receipt Date: 20210818
  Transmission Date: 20211014
  Serious: Yes (Death)
  Sender: FDA-Public Use
  Company Number: US-SECURA BIO, INC.-2021-SECUR-US003359

PATIENT
  Age: 80 Year
  Sex: Female

DRUGS (1)
  1. COPIKTRA [Suspect]
     Active Substance: DUVELISIB
     Indication: CUTANEOUS T-CELL LYMPHOMA
     Dosage: UNK
     Route: 048
     Dates: start: 20140910

REACTIONS (2)
  - Product use in unapproved indication [Unknown]
  - Death [Fatal]

NARRATIVE: CASE EVENT DATE: 20210805
